FAERS Safety Report 5099107-8 (Version None)
Quarter: 2006Q3

REPORT INFORMATION
  Report Type: 
  Country: None (occurrence: None)
  Receive Date: 20060731
  Receipt Date: 20051026
  Transmission Date: 20061208
  Serious: Yes (Other)
  Sender: FDA-Public Use
  Company Number: 218927

PATIENT
  Age: 77 Year
  Sex: Female

DRUGS (5)
  1. MABTHERA(RITUXIMAB) CONC FOR SOLUTION FOR INFUSION [Suspect]
     Indication: IDIOPATHIC THROMBOCYTOPENIC PURPURA
     Dosage: 375 MG/M2, 1/WEEK, INTRAVENOUS
     Route: 042
  2. WARFARIN SODIUM [Concomitant]
  3. IMMUNE GLOBULIN (GLOBULIN, IMMUNE) [Concomitant]
  4. PREDNISOLONE [Concomitant]
  5. DANAZOL [Concomitant]

REACTIONS (1)
  - PNEUMONITIS [None]
